FAERS Safety Report 7455264-7 (Version None)
Quarter: 2011Q2

REPORT INFORMATION
  Report Type: 
  Country: None (occurrence: None)
  Receive Date: 20110503
  Receipt Date: 20110430
  Transmission Date: 20111010
  Serious: Yes (Death)
  Sender: FDA-Public Use
  Company Number: PHHY2011MX36648

PATIENT
  Age: 69 Year
  Sex: Male

DRUGS (1)
  1. EXFORGE HCT [Suspect]
     Indication: HYPERTENSION
     Dosage: 1 DF, (320/10/25 MG) PER DAY
     Dates: end: 20110401

REACTIONS (1)
  - CEREBRAL INFARCTION [None]
